FAERS Safety Report 9292476 (Version 2)
Quarter: 2013Q2

REPORT INFORMATION
  Report Type: Spontaneous
  Country: FR (occurrence: FR)
  Receive Date: 20130516
  Receipt Date: 20130610
  Transmission Date: 20140414
  Serious: Yes (Other)
  Sender: FDA-Public Use
  Company Number: FR-PFIZER INC-2013141950

PATIENT
  Age: 65 Year
  Sex: Male

DRUGS (10)
  1. DALACINE [Suspect]
     Indication: INTERVERTEBRAL DISCITIS
     Dosage: 600 MG, 3X/DAY
     Route: 048
     Dates: start: 201303, end: 20130406
  2. RIFAMPICIN [Suspect]
     Indication: INTERVERTEBRAL DISCITIS
     Dosage: 900 MG, 2X/DAY
     Route: 048
     Dates: start: 20130219, end: 20130406
  3. RIMIFON [Suspect]
     Indication: INTERVERTEBRAL DISCITIS
     Dosage: 5 MG/KG, 1X/DAY
     Route: 048
     Dates: start: 20130219, end: 20130406
  4. CRESTOR [Concomitant]
  5. AERIUS [Concomitant]
  6. VENTOLINE [Concomitant]
  7. OMBREZ [Concomitant]
  8. PARACETAMOL [Concomitant]
  9. FORLAX [Concomitant]
  10. THERALENE [Concomitant]

REACTIONS (2)
  - Hepatocellular injury [Recovered/Resolved]
  - Cholestasis [Not Recovered/Not Resolved]
